FAERS Safety Report 7290637-7 (Version None)
Quarter: 2011Q1

REPORT INFORMATION
  Report Type: 
  Country: None (occurrence: None)
  Receive Date: 20110214
  Receipt Date: 20110207
  Transmission Date: 20110831
  Serious: Yes (Other)
  Sender: FDA-Public Use
  Company Number: GB-JNJFOC-20110202345

PATIENT
  Age: 12 Year
  Sex: Male

DRUGS (2)
  1. CONCERTA [Suspect]
     Indication: PRODUCT USED FOR UNKNOWN INDICATION
     Route: 048
  2. CONCERTA [Suspect]
     Route: 048

REACTIONS (6)
  - BLOOD CALCIUM DECREASED [None]
  - INCORRECT DOSE ADMINISTERED [None]
  - WHITE BLOOD CELL COUNT DECREASED [None]
  - METABOLIC DISORDER [None]
  - BLOOD ALKALINE PHOSPHATASE INCREASED [None]
  - PHARYNGITIS [None]
